FAERS Safety Report 5164282-3 (Version None)
Quarter: 2006Q4

REPORT INFORMATION
  Report Type: 
  Country: None (occurrence: None)
  Receive Date: 20061129
  Receipt Date: 20061129
  Transmission Date: 20070319
  Serious: Yes (Hospitalization)
  Sender: FDA-Public Use
  Company Number: None

PATIENT
  Sex: Male
  Weight: 64 kg

DRUGS (3)
  1. FLUDARABINE [Suspect]
     Indication: STEM CELL TRANSPLANT
     Dosage: 50MG ONCE A DAY IV DRIP
     Route: 041
     Dates: start: 20060831, end: 20060904
  2. CAMPATH [Suspect]
     Indication: STEM CELL TRANSPLANT
     Dosage: 20 MG ONCE A DAY IV DRIP
     Route: 041
     Dates: start: 20060831, end: 20060904
  3. BUSULFAN [Suspect]
     Dosage: 260 MG TWO DOSES 416 TWO DOSES ONCE A DAY IV DRIP
     Route: 041
     Dates: start: 20060901, end: 20060904

REACTIONS (5)
  - BACTERIAL INFECTION [None]
  - BLOOD CULTURE POSITIVE [None]
  - DYSURIA [None]
  - GENERAL PHYSICAL HEALTH DETERIORATION [None]
  - PYREXIA [None]
